FAERS Safety Report 5347072-8 (Version None)
Quarter: 2007Q2

REPORT INFORMATION
  Report Type: 
  Country: None (occurrence: None)
  Receive Date: 20070604
  Receipt Date: 20070523
  Transmission Date: 20071010
  Serious: Yes (Death)
  Sender: FDA-Public Use
  Company Number: US020187

PATIENT
  Age: 54 Year

DRUGS (6)
  1. ARSENIC TRIOXIDE [Suspect]
     Indication: ACUTE PROMYELOCYTIC LEUKAEMIA
     Dosage: 0.15 MG/KG QD INTRAVENOUS DRIP
     Route: 041
  2. ARSENIC TRIOXIDE [Suspect]
     Indication: ACUTE PROMYELOCYTIC LEUKAEMIA
     Dosage: 0.15 MG/KG ONCE A DAY 5 DAYS PER WEEK FOR 4 WEEKS, REPEATED EVERY 8 WEEKS INTRAVENOUS DRIP
     Route: 041
  3. ARSENIC TRIOXIDE [Suspect]
     Indication: ACUTE PROMYELOCYTIC LEUKAEMIA
     Dosage: {0.15 MG/KG ONCE A DAY 5 DAYS PER WEEK FOR 4 WEEKS REPEATED EVERY 8 WEEKS INTRAVENOUS DRIP
     Route: 041
  4. ALL-TRANS RETINOIC ACID [Suspect]
     Indication: ACUTE PROMYELOCYTIC LEUKAEMIA
     Dosage: 45 MG/M2 BID FOR 10 DAYS EVERY MONTH ORAL
     Route: 048
  5. GEMTUZUMAB OZOGAMICIN [Suspect]
     Indication: ACUTE PROMYELOCYTIC LEUKAEMIA
     Dosage: 9 MG/M2 QMON INTRAVENOUS
     Route: 042
  6. SOLU-MEDROL [Concomitant]

REACTIONS (1)
  - BACTERIAL SEPSIS [None]
